FAERS Safety Report 6723562-8 (Version None)
Quarter: 2010Q2

REPORT INFORMATION
  Report Type: 
  Country: None (occurrence: None)
  Receive Date: 20100513
  Receipt Date: 20100305
  Transmission Date: 20101027
  Serious: Yes (Hospitalization, Disabling, Other)
  Sender: FDA-Public Use
  Company Number: FR-ROCHE-572915

PATIENT
  Sex: Female
  Weight: 54 kg

DRUGS (9)
  1. BEVACIZUMAB [Suspect]
     Indication: RECTAL CANCER
     Dosage: FREQUENCY REPORTED AS 1.
     Route: 042
     Dates: start: 20080416, end: 20080611
  2. BEVACIZUMAB [Suspect]
     Dosage: FREQUENCY: 1
     Route: 042
  3. OXALIPLATIN [Suspect]
     Indication: RECTAL CANCER
     Dosage: FREQUENCY REPORTED AS 1.
     Route: 042
     Dates: start: 20080416, end: 20080611
  4. FLUOROURACIL [Suspect]
     Indication: RECTAL CANCER
     Dosage: FREQUENCY REPORTED AS 2 DAYS.
     Route: 042
     Dates: start: 20080416, end: 20080612
  5. FOLINIC ACID [Suspect]
     Indication: RECTAL CANCER
     Dosage: FREQUENCY REPORTED AS 2 DAYS.
     Route: 042
     Dates: start: 20080416, end: 20080612
  6. ZOLPIDEM [Concomitant]
     Dates: start: 20080318
  7. DAFALGAN [Concomitant]
     Dates: start: 20080414
  8. INNOHEP [Concomitant]
     Dates: start: 20080623, end: 20080929
  9. DEXERYL [Concomitant]
     Dates: start: 20080502, end: 20080725

REACTIONS (3)
  - NEUTROPENIA [None]
  - PULMONARY EMBOLISM [None]
  - THROMBOPHLEBITIS [None]
